FAERS Safety Report 4953918-5 (Version None)
Quarter: 2006Q1

REPORT INFORMATION
  Report Type: 
  Country: None (occurrence: None)
  Receive Date: 20060321
  Receipt Date: 20060308
  Transmission Date: 20060701
  Serious: Yes (Hospitalization)
  Sender: FDA-Public Use
  Company Number: 06H-163-0306369-00

PATIENT
  Sex: Male
  Weight: 61.2356 kg

DRUGS (13)
  1. MIDAZOLAM HYDROCHLORIDE [Suspect]
     Indication: SEDATION
     Dosage: INTRAVENOUS
     Route: 042
     Dates: start: 20051101, end: 20051101
  2. DIPRIVAN [Suspect]
     Indication: SEDATION
     Dosage: INTRAVENOUS
     Route: 042
     Dates: start: 20051101, end: 20051101
  3. VIDEX EC [Concomitant]
  4. TRUVADA [Concomitant]
  5. VALTREX [Concomitant]
  6. PRENATAL VITAMINS (VITAMINS) [Concomitant]
  7. OXANDRIN [Concomitant]
  8. DAPSONE [Concomitant]
  9. MOTOFEN (LYSPAFEN) [Concomitant]
  10. MARINOL [Concomitant]
  11. ASPIRIN [Concomitant]
  12. ANDROGEL [Concomitant]
  13. KALETRA [Concomitant]

REACTIONS (2)
  - COMPUTERISED TOMOGRAM THORAX ABNORMAL [None]
  - DELAYED RECOVERY FROM ANAESTHESIA [None]
